FAERS Safety Report 10347377 (Version 1)
Quarter: 2014Q3

REPORT INFORMATION
  Report Type: Spontaneous
  Country: US (occurrence: None)
  Receive Date: 20140728
  Receipt Date: 20140728
  Transmission Date: 20150326
  Serious: Yes (Hospitalization)
  Sender: FDA-Public Use
  Company Number: None

PATIENT
  Age: 71 Year
  Sex: Male
  Weight: 97.07 kg

DRUGS (10)
  1. LOSARTAN [Concomitant]
     Active Substance: LOSARTAN
  2. LIDOCAINE HCL [Concomitant]
     Active Substance: LIDOCAINE HYDROCHLORIDE
  3. PREDNISONE. [Concomitant]
     Active Substance: PREDNISONE
  4. ABIRATERONE ACETATE [Suspect]
     Active Substance: ABIRATERONE ACETATE
     Indication: PROSTATE CANCER
     Route: 048
     Dates: start: 20140313, end: 20140718
  5. ASPIRIN. [Concomitant]
     Active Substance: ASPIRIN
  6. GOSERELIN [Concomitant]
     Active Substance: GOSERELIN
  7. NIFEDIPINE. [Concomitant]
     Active Substance: NIFEDIPINE
  8. GLIPIZIDE. [Concomitant]
     Active Substance: GLIPIZIDE
  9. PREDNISONE. [Suspect]
     Active Substance: PREDNISONE
     Indication: PROSTATE CANCER
     Route: 048
  10. FENOFIBRATE. [Concomitant]
     Active Substance: FENOFIBRATE

REACTIONS (3)
  - Syncope [None]
  - Thalamic infarction [None]
  - Atrial fibrillation [None]

NARRATIVE: CASE EVENT DATE: 20140718
